FAERS Safety Report 6826372-6 (Version None)
Quarter: 2010Q3

REPORT INFORMATION
  Report Type: 
  Country: None (occurrence: None)
  Receive Date: 20100709
  Receipt Date: 20100702
  Transmission Date: 20110219
  Serious: Yes (Hospitalization, Other)
  Sender: FDA-Public Use
  Company Number: PT-BRISTOL-MYERS SQUIBB COMPANY-15182124

PATIENT
  Age: 42 Year
  Sex: Male

DRUGS (2)
  1. EFAVIRENZ [Suspect]
     Dosage: TAKEN 2 YEARS AGO OCT/NOV2008
  2. COMBIVIR [Suspect]

REACTIONS (2)
  - HALLUCINATION [None]
  - LYMPHOCYTE COUNT DECREASED [None]
